FAERS Safety Report 7153130-8 (Version None)
Quarter: 2010Q4

REPORT INFORMATION
  Report Type: 
  Country: None (occurrence: None)
  Receive Date: 20101213
  Receipt Date: 20101208
  Transmission Date: 20110411
  Serious: Yes (Death)
  Sender: FDA-Public Use
  Company Number: US-ABBOTT-10P-163-0690257-00

PATIENT
  Sex: Female

DRUGS (1)
  1. ZEMPLAR [Suspect]
     Indication: PRODUCT USED FOR UNKNOWN INDICATION

REACTIONS (5)
  - COLON CANCER [None]
  - GASTRIC ULCER [None]
  - HEPATIC NEOPLASM MALIGNANT [None]
  - LABORATORY TEST ABNORMAL [None]
  - RECTAL HAEMORRHAGE [None]
